FAERS Safety Report 4571905-6 (Version None)
Quarter: 2005Q1

REPORT INFORMATION
  Report Type: 
  Country: None (occurrence: None)
  Receive Date: 20050207
  Receipt Date: 20040323
  Transmission Date: 20050727
  Serious: Yes (Death)
  Sender: FDA-Public Use
  Company Number: PHHO2004IN04894

PATIENT
  Age: 41 Year
  Sex: Male

DRUGS (6)
  1. WYSOLONE [Concomitant]
     Indication: RASH
     Dates: start: 20020829, end: 20021205
  2. ATARAX [Concomitant]
     Indication: RASH
     Dates: end: 20021004
  3. GLEEVEC [Suspect]
     Indication: CHRONIC MYELOID LEUKAEMIA
     Dosage: UNK, UNK
     Route: 048
     Dates: start: 20020801
  4. GLEEVEC [Suspect]
     Route: 048
  5. GLEEVEC [Suspect]
     Route: 048
  6. GLEEVEC [Suspect]
     Dates: end: 20021127

REACTIONS (6)
  - ACUTE RESPIRATORY DISTRESS SYNDROME [None]
  - BRONCHOPNEUMONIA [None]
  - CHLOROMA [None]
  - MALIGNANT PLEURAL EFFUSION [None]
  - RENAL FAILURE ACUTE [None]
  - SEPSIS [None]
